FAERS Safety Report 4531969-2 (Version None)
Quarter: 2004Q4

REPORT INFORMATION
  Report Type: 
  Country: None (occurrence: None)
  Receive Date: 20041216
  Receipt Date: 20041203
  Transmission Date: 20050328
  Serious: Yes (Death)
  Sender: FDA-Public Use
  Company Number: ENDC20040061

PATIENT
  Age: 41 Year
  Sex: Female

DRUGS (3)
  1. ENDOCET      UNKNOWN     ENDO [Suspect]
     Indication: POST PROCEDURAL PAIN
     Dosage: PO
     Route: 048
     Dates: start: 20030101, end: 20030101
  2. ACETAMINOPHEN/HYDROCORODNE [Suspect]
     Dosage: PO
     Route: 048
     Dates: start: 20030101, end: 20030101
  3. VALDECOXIB [Suspect]
     Dosage: PO
     Route: 048
     Dates: start: 20030101, end: 20030101

REACTIONS (4)
  - COMPLETED SUICIDE [None]
  - CONFUSIONAL STATE [None]
  - SOMNOLENCE [None]
  - TREATMENT NONCOMPLIANCE [None]
